FAERS Safety Report 9525663 (Version 2)
Quarter: 2014Q1

REPORT INFORMATION
  Report Type: Spontaneous
  Country: US (occurrence: None)
  Receive Date: 20130305
  Receipt Date: 20140306
  Transmission Date: 20141002
  Serious: Yes (Other)
  Sender: FDA-Public Use
  Company Number: 163-21880-12023043

PATIENT
  Age: 79 Year
  Sex: Male
  Weight: 63.05 kg

DRUGS (14)
  1. REVLIMID (LENALIDOMIDE) (25 MILLIGRAM, CAPSULES) [Suspect]
     Indication: PLASMA CELL MYELOMA
     Dosage: 25 MG, 21 IN 28 D
     Route: 048
     Dates: start: 20120104, end: 20120223
  2. VELCADE (BORTEZOMIB) (TABLETS) [Concomitant]
  3. ASPIRIN (ACETYLSALICYLIC ACID) (TABLETS) [Concomitant]
  4. JANUVIA (SITAGLIPTIN PHOSPHATE) (UNKNOWN) [Concomitant]
  5. PRAVASTATIN (PRAVASTATIN) (TABLETS) [Concomitant]
  6. MEGACE (MEGESTROL ACETATE) [Concomitant]
  7. HYDROCODONE [Concomitant]
  8. SELENIUM [Concomitant]
  9. ZINC [Concomitant]
  10. OXYCONTIN (OXYCODONE HYDROCHLORIDE) [Concomitant]
  11. SENNA S (COLOXYL WITH SENNA) [Concomitant]
  12. VITAMIN C (ASCORBIC ACID) [Concomitant]
  13. VITAMIN B1 (THIAMINE HYDROCHLORIDE) [Concomitant]
  14. MULTIVITAMIN [Concomitant]

REACTIONS (2)
  - Bronchitis [None]
  - Rash generalised [None]
